FAERS Safety Report 20709348 (Version 1)
Quarter: 2022Q2

REPORT INFORMATION
  Report Type: Spontaneous
  Country: AU (occurrence: AU)
  Receive Date: 20220414
  Receipt Date: 20220414
  Transmission Date: 20220720
  Serious: Yes (Hospitalization)
  Sender: FDA-Public Use
  Company Number: AU-MYLANLABS-2022M1026766

PATIENT
  Age: 73 Year
  Sex: Female

DRUGS (1)
  1. FLUOROURACIL [Suspect]
     Active Substance: FLUOROURACIL
     Indication: Actinic keratosis
     Dosage: UNK, BID(APPLYING TWICE DAILY TO HER FACE, CHEST, ARMS AND LEGS)
     Route: 061

REACTIONS (2)
  - Skin reaction [Recovering/Resolving]
  - Scab [Recovering/Resolving]
